FAERS Safety Report 19560810 (Version 4)
Quarter: 2021Q4

REPORT INFORMATION
  Report Type: Report from Study
  Country: US (occurrence: US)
  Receive Date: 20210714
  Receipt Date: 20211004
  Transmission Date: 20220303
  Serious: Yes (Other)
  Sender: FDA-Public Use
  Company Number: US-NOVARTISPH-NVSC2021US150662

PATIENT
  Age: 68 Year
  Sex: Female

DRUGS (4)
  1. ENTRESTO [Suspect]
     Active Substance: SACUBITRIL\VALSARTAN
     Indication: Cardiac failure chronic
     Dosage: 1 DF, BID (24.26 MG)
     Route: 048
     Dates: start: 202106
  2. ENTRESTO [Suspect]
     Active Substance: SACUBITRIL\VALSARTAN
     Dosage: 1 DF, (24/26 MG) BID
     Route: 065
  3. COREG [Concomitant]
     Active Substance: CARVEDILOL
     Indication: Product used for unknown indication
     Dosage: UNK
     Route: 065
  4. COREG [Concomitant]
     Active Substance: CARVEDILOL
     Dosage: UNK (HALF DOSE)
     Route: 065

REACTIONS (5)
  - Impaired healing [Unknown]
  - Mobility decreased [Unknown]
  - Back pain [Unknown]
  - Headache [Recovering/Resolving]
  - Hypotension [Recovered/Resolved]

NARRATIVE: CASE EVENT DATE: 20210601
